FAERS Safety Report 8417829-5 (Version None)
Quarter: 2012Q2

REPORT INFORMATION
  Report Type: 
  Country: None (occurrence: None)
  Receive Date: 20120607
  Receipt Date: 20120605
  Transmission Date: 20120825
  Serious: No
  Sender: FDA-Public Use
  Company Number: US-PFIZER INC-2012135370

PATIENT
  Sex: Female

DRUGS (1)
  1. SUTENT [Suspect]
     Dosage: UNK

REACTIONS (6)
  - NAUSEA [None]
  - WEIGHT DECREASED [None]
  - GLOSSITIS [None]
  - EYE DISORDER [None]
  - EATING DISORDER [None]
  - CONTUSION [None]
